FAERS Safety Report 5951832 (Version 4)
Quarter: 2017Q1

REPORT INFORMATION
  Report Type: Spontaneous
  Country: JP (occurrence: JP)
  Receive Date: 20051228
  Receipt Date: 20170213
  Transmission Date: 20170429
  Serious: Yes (Death, Other)
  Sender: FDA-Public Use
  Company Number: JP-BRISTOL-MYERS SQUIBB COMPANY-13220595

PATIENT
  Age: 66 Year
  Sex: Male

DRUGS (3)
  1. TAXOL [Suspect]
     Active Substance: PACLITAXEL
     Indication: BLADDER CANCER
     Dosage: 90 MG, QD
     Route: 041
     Dates: start: 20051102, end: 20051129
  2. GEMZAR [Concomitant]
     Active Substance: GEMCITABINE HYDROCHLORIDE
     Indication: BLADDER CANCER
     Dosage: 1200 MG, QD
     Route: 041
     Dates: start: 20051102, end: 20051129
  3. RANDA [Suspect]
     Active Substance: CISPLATIN
     Indication: BLADDER CANCER
     Dosage: 100 MG, QD
     Route: 041
     Dates: start: 20051102, end: 20051129

REACTIONS (7)
  - Malignant neoplasm progression [Fatal]
  - Hallucination [Fatal]
  - Hallucination, visual [Unknown]
  - Depressed level of consciousness [Not Recovered/Not Resolved]
  - Eating disorder [Unknown]
  - Headache [Not Recovered/Not Resolved]
  - Auditory disorder [Not Recovered/Not Resolved]

NARRATIVE: CASE EVENT DATE: 20051106
